FAERS Safety Report 10141910 (Version 1)
Quarter: 2014Q2

REPORT INFORMATION
  Report Type: Spontaneous
  Country: US (occurrence: US)
  Receive Date: 20140429
  Receipt Date: 20140429
  Transmission Date: 20141212
  Serious: Yes (Death)
  Sender: FDA-Public Use
  Company Number: US-PFIZER INC-2014116150

PATIENT
  Age: 54 Year
  Sex: Female
  Weight: 72.56 kg

DRUGS (3)
  1. BOSULIF [Suspect]
     Dosage: UNK
  2. ZOLOFT [Concomitant]
     Dosage: UNK
  3. PREDNISONE [Concomitant]
     Dosage: UNK

REACTIONS (1)
  - Cardiac failure congestive [Fatal]
